FAERS Safety Report 19527690 (Version 3)
Quarter: 2021Q3

REPORT INFORMATION
  Report Type: Report from Study
  Country: US (occurrence: US)
  Receive Date: 20210713
  Receipt Date: 20210805
  Transmission Date: 20211014
  Serious: Yes (Other)
  Sender: FDA-Public Use
  Company Number: US-CELGENEUS-USA-20210701283

PATIENT
  Age: 77 Year
  Sex: Female
  Weight: 62.4 kg

DRUGS (7)
  1. DEXAMETHASONE. [Suspect]
     Active Substance: DEXAMETHASONE
     Indication: PLASMA CELL MYELOMA
     Route: 048
  2. ASPIRIN. [Concomitant]
     Active Substance: ASPIRIN
     Dosage: 162 MILLIGRAM
     Route: 048
     Dates: start: 20161122, end: 20180227
  3. ASPIRIN. [Concomitant]
     Active Substance: ASPIRIN
     Indication: PRODUCT USED FOR UNKNOWN INDICATION
     Dosage: 325 MILLIGRAM
     Route: 048
     Dates: start: 20150518, end: 20160330
  4. ASPIRIN. [Concomitant]
     Active Substance: ASPIRIN
     Dosage: 324 MILLIGRAM
     Route: 048
     Dates: start: 20160330, end: 20161122
  5. CC?4047 [Suspect]
     Active Substance: POMALIDOMIDE
     Indication: PLASMA CELL MYELOMA
     Route: 048
  6. BORTEZOMIB. [Suspect]
     Active Substance: BORTEZOMIB
     Indication: PLASMA CELL MYELOMA
     Route: 058
  7. ASPIRIN. [Concomitant]
     Active Substance: ASPIRIN
     Dosage: 162 MILLIGRAM
     Route: 048
     Dates: start: 20190227

REACTIONS (1)
  - Myelodysplastic syndrome [Not Recovered/Not Resolved]

NARRATIVE: CASE EVENT DATE: 20210420
